FAERS Safety Report 25067389 (Version 1)
Quarter: 2025Q1

REPORT INFORMATION
  Report Type: Spontaneous
  Country: US (occurrence: US)
  Receive Date: 20250312
  Receipt Date: 20250312
  Transmission Date: 20250409
  Serious: No
  Sender: ROCHE
  Company Number: US-ROCHE-10000224789

PATIENT
  Sex: Female

DRUGS (1)
  1. XOLAIR [Suspect]
     Active Substance: OMALIZUMAB
     Indication: Urticaria
     Route: 058
     Dates: start: 202303

REACTIONS (6)
  - Off label use [Unknown]
  - Off label use [Unknown]
  - Lip disorder [Recovered/Resolved]
  - Tongue disorder [Recovered/Resolved]
  - Eye disorder [Recovered/Resolved]
  - Pharyngeal disorder [Recovered/Resolved]
